FAERS Safety Report 8518337-3 (Version None)
Quarter: 2012Q3

REPORT INFORMATION
  Report Type: 
  Country: None (occurrence: None)
  Receive Date: 20120718
  Receipt Date: 20120229
  Transmission Date: 20120928
  Serious: No
  Sender: FDA-Public Use
  Company Number: US-BRISTOL-MYERS SQUIBB COMPANY-16378663

PATIENT
  Age: 86 Year
  Sex: Male
  Weight: 91 kg

DRUGS (13)
  1. COUMADIN [Suspect]
     Indication: ATRIAL FIBRILLATION
     Dosage: RX NO: 078980088143 CURRENT DOSE:4.5MG/D
     Dates: start: 20030101
  2. VITAMIN D [Concomitant]
  3. VITAMIN B COMPLEX CAP [Concomitant]
  4. CRESTOR [Concomitant]
  5. VITAMIN TAB [Concomitant]
  6. FUROSEMIDE [Concomitant]
     Dosage: ALSO 40 MG QOD
  7. LOTEMAX [Concomitant]
     Indication: HERPES OPHTHALMIC
  8. ACYCLOVIR [Concomitant]
  9. DIGOXIN [Concomitant]
  10. COENZYME Q10 [Concomitant]
  11. MULTI-VITAMIN [Concomitant]
  12. MORNIFLUMATE [Concomitant]
  13. LUTEIN [Concomitant]

REACTIONS (1)
  - PROTHROMBIN TIME RATIO ABNORMAL [None]
